FAERS Safety Report 18036176 (Version 1)
Quarter: 2020Q3

REPORT INFORMATION
  Report Type: Spontaneous
  Country: US (occurrence: US)
  Receive Date: 20200717
  Receipt Date: 20200717
  Transmission Date: 20201103
  Serious: Yes (Other)
  Sender: FDA-Public Use
  Company Number: None

PATIENT
  Age: 44 Year
  Sex: Male
  Weight: 100.5 kg

DRUGS (12)
  1. REMDESIVIR. [Suspect]
     Active Substance: REMDESIVIR
     Indication: COVID-19
     Dosage: ?          OTHER FREQUENCY:200MG, 100MGX4D;?
     Route: 042
     Dates: start: 20200712, end: 20200716
  2. FAMOTIDINE 20MG PO Q12H [Concomitant]
     Dates: start: 20200712
  3. VITAMIN C 1000MG PO DAILY [Concomitant]
     Dates: start: 20200711
  4. SPIRIVA 18MCG INHALED DAILY [Concomitant]
     Dates: start: 20200712
  5. ENOXAPARIN 30MG SUBQ Q12H [Concomitant]
     Dates: start: 20200711
  6. ADVAIR HFA 115/21 2 PUFF BID [Concomitant]
     Dates: start: 20200712
  7. ZINC SULFATE 200MG PO DAILY [Concomitant]
     Dates: start: 20200711
  8. AZITHROMYCIN 500MG IV DAILY [Concomitant]
     Dates: start: 20200711
  9. BENZONATATE 200MG Q8H [Concomitant]
     Dates: start: 20200712
  10. INSULIN LISPRO SLIDING SCALE [Concomitant]
     Dates: start: 20200712
  11. CEFTRIAXONE 1G IV DAILY [Concomitant]
     Dates: start: 20200711
  12. ACETAMINOPHEN Q6H PRN FEVER [Concomitant]
     Dates: start: 20200711, end: 20200712

REACTIONS (4)
  - SARS-CoV-2 test positive [None]
  - COVID-19 pneumonia [None]
  - Oxygen saturation decreased [None]
  - Platelet count increased [None]

NARRATIVE: CASE EVENT DATE: 20200715
